FAERS Safety Report 5497734-7 (Version None)
Quarter: 2007Q4

REPORT INFORMATION
  Report Type: 
  Country: None (occurrence: None)
  Receive Date: 20071025
  Receipt Date: 20070424
  Transmission Date: 20080405
  Serious: No
  Sender: FDA-Public Use
  Company Number: A0639730A

PATIENT
  Age: 78 Year
  Sex: Female
  Weight: 49.1 kg

DRUGS (7)
  1. ADVAIR DISKUS 100/50 [Suspect]
     Indication: ASTHMA
     Dosage: 1PUFF UNKNOWN
     Route: 055
     Dates: start: 20010101, end: 20050101
  2. COZAAR [Concomitant]
  3. PREVACID [Concomitant]
  4. UNKNOWN MEDICATION [Concomitant]
  5. ASPIRIN [Concomitant]
  6. NEURONTIN [Concomitant]
  7. ZOCOR [Concomitant]

REACTIONS (5)
  - COUGH [None]
  - DYSPHAGIA [None]
  - HYPERSENSITIVITY [None]
  - PHARYNGEAL OEDEMA [None]
  - WHEEZING [None]
